FAERS Safety Report 24015873 (Version 1)
Quarter: 2024Q2

REPORT INFORMATION
  Report Type: Spontaneous
  Country: CN (occurrence: CN)
  Receive Date: 20240626
  Receipt Date: 20240626
  Transmission Date: 20240715
  Serious: Yes (Other)
  Sender: FDA-Public Use
  Company Number: CN-PFIZER INC-PV202400083699

PATIENT
  Age: 25 Year
  Sex: Male
  Weight: 50 kg

DRUGS (2)
  1. METHOTREXATE SODIUM [Suspect]
     Active Substance: METHOTREXATE SODIUM
     Indication: T-cell lymphoma
     Dosage: 3.5 G, 1X/DAY
     Route: 041
     Dates: start: 20240401, end: 20240401
  2. CAMRELIZUMAB [Suspect]
     Active Substance: CAMRELIZUMAB
     Indication: T-cell lymphoma
     Dosage: 200 MG, 1X/DAY
     Route: 041
     Dates: start: 20240401, end: 20240401

REACTIONS (1)
  - Liver injury [Recovering/Resolving]

NARRATIVE: CASE EVENT DATE: 20240512
